FAERS Safety Report 20638780 (Version 1)
Quarter: 2022Q1

REPORT INFORMATION
  Report Type: Spontaneous
  Country: US (occurrence: None)
  Receive Date: 20220325
  Receipt Date: 20220325
  Transmission Date: 20220423
  Serious: Yes (Other)
  Sender: FDA-Public Use
  Company Number: US-Fresenius Kabi-FK202203442

PATIENT
  Age: 55 Year
  Sex: Male

DRUGS (10)
  1. DOXORUBICIN [Suspect]
     Active Substance: DOXORUBICIN
     Indication: Acute lymphocytic leukaemia
     Dosage: EPOCH-R REGIMEN?EIGHT CYCLES OF DOSE-ADJUSTED
  2. ETOPOSIDE [Suspect]
     Active Substance: ETOPOSIDE
     Indication: Acute lymphocytic leukaemia
     Dosage: EPOCH-R REGIMEN?EIGHT CYCLES OF DOSE-ADJUSTED
  3. METHOTREXATE [Suspect]
     Active Substance: METHOTREXATE
     Indication: Acute lymphocytic leukaemia
     Dosage: POMP REGIMEN ?(MAINTENANCE CHEMOTHERAPY) FOR 2 MONTHS
  4. PREDNISONE [Suspect]
     Active Substance: PREDNISONE
     Indication: Acute lymphocytic leukaemia
     Dosage: EPOCH-R REGIMEN?EIGHT CYCLES OF DOSE-ADJUSTED
  5. PREDNISONE [Suspect]
     Active Substance: PREDNISONE
     Dosage: MAINTENANCE CHEMOTHERAPY ?(POMP REGIMEN) FOR 2 MONTHS
  6. VINCRISTINE [Suspect]
     Active Substance: VINCRISTINE
     Indication: Acute lymphocytic leukaemia
     Dosage: EPOCH-R REGIMEN?EIGHT CYCLES OF DOSE-ADJUSTED
  7. VINCRISTINE [Suspect]
     Active Substance: VINCRISTINE
     Dosage: MAINTENANCE CHEMOTHERAPY ?(POMP REGIMEN) FOR 2 MONTHS
  8. RITUXIMAB [Suspect]
     Active Substance: RITUXIMAB
     Indication: Acute lymphocytic leukaemia
     Dosage: EPOCH-R REGIMEN?EIGHT CYCLES OF DOSE-ADJUSTED
  9. CYCLOPHOSPHAMIDE [Suspect]
     Active Substance: CYCLOPHOSPHAMIDE
     Indication: Acute lymphocytic leukaemia
     Dosage: EPOCH-R REGIMEN?EIGHT CYCLES OF DOSE-ADJUSTED
  10. MERCAPTOPURINE [Suspect]
     Active Substance: MERCAPTOPURINE
     Indication: Acute lymphocytic leukaemia
     Dosage: [6-MERCAPTOPURINE]?(POMP REGIMEN) (MAINTENANCE CHEMOTHERAPY) FOR 2 MONTHS

REACTIONS (1)
  - Cytomegalovirus chorioretinitis [Recovering/Resolving]
